FAERS Safety Report 26162527 (Version 1)
Quarter: 2025Q4

REPORT INFORMATION
  Report Type: Report from Study
  Country: ZA (occurrence: ZA)
  Receive Date: 20251216
  Receipt Date: 20251216
  Transmission Date: 20260118
  Serious: Yes (Hospitalization)
  Sender: SANOFI AVENTIS
  Company Number: ZA-SA-2025SA256263

PATIENT
  Age: 50 Year
  Sex: Male

DRUGS (2)
  1. INSULIN GLARGINE [Suspect]
     Active Substance: INSULIN GLARGINE
     Indication: Type 2 diabetes mellitus
     Dosage: 25 IU, QD
     Route: 058
     Dates: start: 20240824
  2. INSULIN GLARGINE [Suspect]
     Active Substance: INSULIN GLARGINE
     Dosage: 23 IU, HS
     Route: 058
     Dates: start: 202511

REACTIONS (6)
  - Abdominal pain upper [Recovering/Resolving]
  - Injection site pain [Recovering/Resolving]
  - Multiple use of single-use product [Unknown]
  - Hypoglycaemia [Recovering/Resolving]
  - Blood glucose increased [Recovered/Resolved]
  - Lacrimation increased [Recovering/Resolving]

NARRATIVE: CASE EVENT DATE: 20240801
